FAERS Safety Report 8542320-5 (Version None)
Quarter: 2012Q3

REPORT INFORMATION
  Report Type: 
  Country: None (occurrence: None)
  Receive Date: 20120726
  Receipt Date: 20111220
  Transmission Date: 20120928
  Serious: No
  Sender: FDA-Public Use
  Company Number: US-ASTRAZENECA-2010SE36243

PATIENT
  Age: 61 Year
  Sex: Female
  Weight: 52.6 kg

DRUGS (20)
  1. SEROQUEL [Suspect]
     Route: 048
  2. SEROQUEL [Suspect]
     Route: 048
     Dates: start: 20110101
  3. SEROQUEL [Suspect]
     Route: 048
  4. SEROQUEL [Suspect]
     Route: 048
  5. SEROQUEL [Suspect]
     Route: 048
     Dates: start: 20100727
  6. SEROQUEL [Suspect]
     Route: 048
  7. SEROQUEL [Suspect]
     Route: 048
  8. SEROQUEL [Suspect]
     Indication: SLEEP DISORDER
     Route: 048
     Dates: start: 20090701, end: 20090701
  9. SEROQUEL [Suspect]
     Route: 048
     Dates: start: 20100727
  10. SEROQUEL [Suspect]
     Route: 048
  11. LITHIUM CARBONATE [Concomitant]
     Indication: BIPOLAR DISORDER
  12. RESTORIL [Concomitant]
  13. SEROQUEL [Suspect]
     Route: 048
  14. SEROQUEL [Suspect]
     Route: 048
     Dates: start: 20110101
  15. SEROQUEL [Suspect]
     Route: 048
  16. SEROQUEL [Suspect]
     Route: 048
     Dates: start: 20100727
  17. SEROQUEL [Suspect]
     Route: 048
  18. SEROQUEL [Suspect]
     Route: 048
     Dates: start: 20110101
  19. SEROQUEL [Suspect]
     Indication: MANIA
     Route: 048
     Dates: start: 20090701, end: 20090701
  20. SEROQUEL [Suspect]
     Indication: BIPOLAR DISORDER
     Route: 048
     Dates: start: 20090701, end: 20090701

REACTIONS (8)
  - THERAPEUTIC RESPONSE UNEXPECTED [None]
  - WEIGHT DECREASED [None]
  - CONSTIPATION [None]
  - WEIGHT INCREASED [None]
  - SEDATION [None]
  - DRUG INTOLERANCE [None]
  - INSOMNIA [None]
  - BLOOD PRESSURE DECREASED [None]
